FAERS Safety Report 18349407 (Version 1)
Quarter: 2020Q4

REPORT INFORMATION
  Report Type: Report from Study
  Country: None (occurrence: HK)
  Receive Date: 20201006
  Receipt Date: 20201006
  Transmission Date: 20210114
  Serious: Yes (Death, Hospitalization)
  Sender: FDA-Public Use
  Company Number: HK-UNICHEM PHARMACEUTICALS (USA) INC-UCM202009-001129

PATIENT
  Sex: Female

DRUGS (1)
  1. DIVALPROEX SODIUM. [Suspect]
     Active Substance: DIVALPROEX SODIUM
     Indication: STATUS EPILEPTICUS

REACTIONS (5)
  - Multiple organ dysfunction syndrome [Fatal]
  - Decreased appetite [Unknown]
  - Hyperammonaemia [Recovering/Resolving]
  - Coma [Unknown]
  - Lethargy [Unknown]
